FAERS Safety Report 4656592-0 (Version None)
Quarter: 2005Q2

REPORT INFORMATION
  Report Type: 
  Country: None (occurrence: None)
  Receive Date: 20050331
  Receipt Date: 20041029
  Transmission Date: 20051028
  Serious: No
  Sender: FDA-Public Use
  Company Number: US097534

PATIENT
  Sex: Female

DRUGS (9)
  1. NEULASTA [Suspect]
     Indication: CHEMOTHERAPY
     Dates: start: 20040713, end: 20041020
  2. PACLITAXEL [Concomitant]
  3. CYCLOPHOSPHAMIDE [Concomitant]
  4. DOXORUBICIN HCL [Concomitant]
  5. GRANISETRON HCL [Concomitant]
  6. DEXAMETHASONE [Concomitant]
  7. PROCRIT [Concomitant]
  8. ZOLPIDEM TARTRATE [Concomitant]
  9. LROAZEPAM [Concomitant]

REACTIONS (3)
  - ARTHRALGIA [None]
  - CHEST WALL PAIN [None]
  - NECK PAIN [None]
